FAERS Safety Report 9168610 (Version 1)
Quarter: 2013Q1

REPORT INFORMATION
  Report Type: Spontaneous
  Country: US (occurrence: US)
  Receive Date: 20130318
  Receipt Date: 20130318
  Transmission Date: 20140127
  Serious: Yes (Other)
  Sender: FDA-Public Use
  Company Number: US-PFIZER INC-2013088191

PATIENT
  Age: 83 Year
  Sex: Female
  Weight: 54.42 kg

DRUGS (3)
  1. GABAPENTIN [Suspect]
     Indication: PAIN IN EXTREMITY
     Dosage: UNK, 3X/DAY
     Route: 048
  2. GABAPENTIN [Suspect]
     Indication: PAIN IN EXTREMITY
  3. SYNTHROID [Concomitant]
     Indication: THYROID DISORDER
     Dosage: UNK

REACTIONS (3)
  - Intervertebral disc protrusion [Unknown]
  - Sensation of heaviness [Not Recovered/Not Resolved]
  - Drug ineffective [Unknown]
